FAERS Safety Report 5247666-4 (Version None)
Quarter: 2007Q1

REPORT INFORMATION
  Report Type: 
  Country: None (occurrence: None)
  Receive Date: 20070227
  Receipt Date: 20070216
  Transmission Date: 20070707
  Serious: Yes (Hospitalization)
  Sender: FDA-Public Use
  Company Number: US-ROCHE-458431

PATIENT
  Sex: Male
  Weight: 81.6 kg

DRUGS (1)
  1. ACCUTANE [Suspect]
     Dosage: ON 14 MAY 1993, THE DOSAGE REGIMEN WAS REPORTED AS 80 MG DAILY.
     Route: 048
     Dates: start: 19921228, end: 19930530

REACTIONS (10)
  - ANAEMIA [None]
  - ANXIETY [None]
  - COLITIS [None]
  - CROHN'S DISEASE [None]
  - DEPRESSION [None]
  - EMOTIONAL DISTRESS [None]
  - ILEITIS [None]
  - INFLAMMATORY BOWEL DISEASE [None]
  - MULTIPLE SCLEROSIS [None]
  - SMALL INTESTINAL OBSTRUCTION [None]
